FAERS Safety Report 9460586 (Version 1)
Quarter: 2013Q3

REPORT INFORMATION
  Report Type: Spontaneous
  Country: CN (occurrence: CN)
  Receive Date: 20130815
  Receipt Date: 20130815
  Transmission Date: 20140515
  Serious: Yes (Hospitalization, Disabling)
  Sender: FDA-Public Use
  Company Number: CN-PFIZER INC-2013235021

PATIENT
  Age: 34 Year
  Sex: Male
  Weight: 55 kg

DRUGS (3)
  1. CELEBREX [Suspect]
     Indication: PAIN
     Dosage: 200 MG, 2X/DAY
     Route: 048
     Dates: start: 20111230, end: 20111231
  2. XELODA [Suspect]
     Indication: GASTRIC CANCER
     Dosage: 3500 MG/CYCLE(1-14DAY)
     Route: 048
     Dates: start: 20110902
  3. ELOXATIN [Concomitant]
     Indication: GASTRIC CANCER
     Dosage: 200 MG/CYCLE
     Route: 041
     Dates: start: 20110902, end: 201112

REACTIONS (1)
  - Metastases to meninges [Not Recovered/Not Resolved]
